FAERS Safety Report 8758151 (Version 1)
Quarter: 2012Q4

REPORT INFORMATION
  Report Type: 
  Country: US (occurrence: US)
  Receive Date: 20120828
  Receipt Date: 20120828
  Transmission Date: 20130627
  Serious: Yes (Other)
  Sender: FDA-Public Use
  Company Number: CHPA2012US018594

PATIENT
  Age: 77 Year
  Sex: Male

DRUGS (1)
  1. 4 WAY FAST ACTING [Suspect]
     Indication: NASAL CONGESTION
     Dosage: Unk, PRN
     Route: 045
     Dates: end: 201208

REACTIONS (1)
  - Drug dependence [Recovered/Resolved]
